FAERS Safety Report 10957904 (Version 4)
Quarter: 2015Q2

REPORT INFORMATION
  Report Type: Report from Study
  Country: US (occurrence: US)
  Receive Date: 20150326
  Receipt Date: 20150505
  Transmission Date: 20150821
  Serious: Yes (Hospitalization, Other)
  Sender: FDA-Public Use
  Company Number: US-ALEXION-A201501011

PATIENT

DRUGS (4)
  1. SOLIRIS [Suspect]
     Active Substance: ECULIZUMAB
     Dosage: UNK, Q2W
     Route: 042
  2. ANTIBIOTICS [Concomitant]
     Active Substance: UNSPECIFIED INGREDIENT
     Indication: PROPHYLAXIS
     Dosage: UNK
     Route: 065
  3. SOLIRIS [Suspect]
     Active Substance: ECULIZUMAB
     Indication: HAEMOLYTIC URAEMIC SYNDROME
     Dosage: 900 MG, QW
     Route: 042
     Dates: start: 20150311
  4. RITUXAN [Suspect]
     Active Substance: RITUXIMAB
     Indication: PRODUCT USED FOR UNKNOWN INDICATION
     Dosage: UNK
     Route: 065
     Dates: start: 20150419

REACTIONS (14)
  - Haematocrit abnormal [Unknown]
  - Unevaluable event [Unknown]
  - Glomerular filtration rate increased [Not Recovered/Not Resolved]
  - Haemoglobin abnormal [Unknown]
  - Platelet count abnormal [Unknown]
  - Blood creatinine abnormal [Unknown]
  - Adverse drug reaction [Unknown]
  - Blood creatinine abnormal [Not Recovered/Not Resolved]
  - Blood lactate dehydrogenase abnormal [Unknown]
  - Urine odour abnormal [Unknown]
  - Pericardial effusion [Not Recovered/Not Resolved]
  - Haemoglobin abnormal [Unknown]
  - Complement factor decreased [Not Recovered/Not Resolved]
  - Platelet count abnormal [Unknown]

NARRATIVE: CASE EVENT DATE: 20150311
